FAERS Safety Report 4293831-2 (Version None)
Quarter: 2004Q1

REPORT INFORMATION
  Report Type: 
  Country: None (occurrence: None)
  Receive Date: 20040210
  Receipt Date: 20040202
  Transmission Date: 20041129
  Serious: Yes (Hospitalization)
  Sender: FDA-Public Use
  Company Number: 200410377GDS

PATIENT
  Age: 14 Year
  Sex: Female

DRUGS (1)
  1. GLUCOBAY [Suspect]
     Indication: SUICIDE ATTEMPT
     Dosage: ONCE, ORAL
     Route: 048

REACTIONS (1)
  - SUICIDE ATTEMPT [None]
